FAERS Safety Report 16663325 (Version 1)
Quarter: 2019Q3

REPORT INFORMATION
  Report Type: Report from Study
  Country: US (occurrence: US)
  Receive Date: 20190802
  Receipt Date: 20190802
  Transmission Date: 20191004
  Serious: No
  Sender: FDA-Public Use
  Company Number: US-EXELIXIS-CABO-19020375

PATIENT
  Age: 62 Year
  Sex: Male

DRUGS (2)
  1. CABOMETYX [Suspect]
     Active Substance: CABOZANTINIB S-MALATE
     Indication: RENAL CANCER
     Dosage: 60 MG, QD (IN MORNING WITHOUT FOOD)
     Dates: start: 20190404, end: 201904
  2. CABOMETYX [Suspect]
     Active Substance: CABOZANTINIB S-MALATE
     Dosage: 40 MG, QD (IN MORNING WITHOUT FOOD)
     Dates: start: 20190429

REACTIONS (8)
  - Gastric pH decreased [Recovering/Resolving]
  - Nausea [Not Recovered/Not Resolved]
  - Stomatitis [Recovering/Resolving]
  - Pain in extremity [Unknown]
  - Blood creatinine increased [Not Recovered/Not Resolved]
  - Fatigue [Recovering/Resolving]
  - Taste disorder [Not Recovered/Not Resolved]
  - Abdominal discomfort [Not Recovered/Not Resolved]

NARRATIVE: CASE EVENT DATE: 201904
